FAERS Safety Report 8680094 (Version 2)
Quarter: 2012Q4

REPORT INFORMATION
  Report Type: 
  Country: FR (occurrence: FR)
  Receive Date: 20120724
  Receipt Date: 20120828
  Transmission Date: 20130627
  Serious: Yes (Death)
  Sender: FDA-Public Use
  Company Number: FR-ROCHE-1084167

PATIENT
  Age: 58 Year
  Sex: Male
  Weight: 68 kg

DRUGS (6)
  1. PEGASYS [Suspect]
     Indication: HEPATITIS C
     Route: 058
     Dates: start: 201011, end: 201111
  2. PEGASYS [Suspect]
     Dates: start: 201202
  3. COPEGUS [Suspect]
     Indication: HEPATITIS C
     Dates: start: 201011, end: 201111
  4. COPEGUS [Suspect]
     Route: 048
     Dates: start: 201202
  5. BIPERIDYS [Concomitant]
  6. SMECTA [Concomitant]

REACTIONS (1)
  - Hepatocellular injury [Fatal]
